FAERS Safety Report 12810900 (Version 1)
Quarter: 2016Q4

REPORT INFORMATION
  Report Type: Spontaneous
  Country: US (occurrence: US)
  Receive Date: 20161004
  Receipt Date: 20161004
  Transmission Date: 20170207
  Serious: Yes (Other)
  Sender: FDA-Public Use
  Company Number: None

PATIENT
  Age: 63 Year
  Sex: Male
  Weight: 99.9 kg

DRUGS (3)
  1. LIDOCAINE 1%-PHENYLEPHRINE 1.5% [Suspect]
     Active Substance: LIDOCAINE HYDROCHLORIDE\PHENYLEPHRINE HYDROCHLORIDE
     Indication: CATARACT OPERATION
     Dosage: OTHER FREQUENCY:ONCE INTRAOP;?
     Route: 031
     Dates: start: 20160919
  2. POVIDONE IODINE OPTHALMIC PREP SOLUTION [Concomitant]
  3. VISCOT BSS ALCON INTRAOPERATIVE LENS WECK-CEL SPONGE CEFURIXIME [Concomitant]

REACTIONS (2)
  - Product use issue [None]
  - Eye inflammation [None]

NARRATIVE: CASE EVENT DATE: 20160919
